FAERS Safety Report 10653576 (Version 2)
Quarter: 2014Q4

REPORT INFORMATION
  Report Type: Report from Study
  Country: US (occurrence: US)
  Receive Date: 20141216
  Receipt Date: 20141216
  Transmission Date: 20150529
  Serious: No
  Sender: FDA-Public Use
  Company Number: US-THROMBOGENICS INC-CLI-2014-1100

PATIENT
  Age: 65 Year
  Sex: Female

DRUGS (12)
  1. JETREA [Suspect]
     Active Substance: OCRIPLASMIN
     Indication: MACULAR HOLE
  2. ZINC [Concomitant]
     Active Substance: ZINC\ZINC CHLORIDE
     Indication: MEDICAL DIET
     Dosage: 1 TAB, DAILY
     Route: 048
  3. B-COMPLEX                          /00003501/ [Concomitant]
     Indication: MEDICAL DIET
     Dosage: 1 TAB, DAILY
     Route: 048
  4. VITAMIN D3 [Concomitant]
     Active Substance: CHOLECALCIFEROL
     Indication: MEDICAL DIET
     Dosage: 1 TAB, DAILY
     Route: 048
  5. ST. JOHN^S WORT                    /01166801/ [Concomitant]
     Active Substance: ST. JOHN^S WORT
     Indication: MEDICAL DIET
     Dosage: 1 TAB, DAILY
     Route: 048
  6. FISH OIL [Concomitant]
     Active Substance: FISH OIL
     Indication: MEDICAL DIET
     Dosage: 1 TAB, DAILY
     Route: 048
  7. LUTEIN                             /01638501/ [Concomitant]
     Active Substance: LUTEIN
     Indication: MEDICAL DIET
     Dosage: 1 TAB, DAILY
     Route: 048
  8. JETREA [Suspect]
     Active Substance: OCRIPLASMIN
     Indication: VITREOUS ADHESIONS
     Dosage: 0.125 MG, ONE TIME DOSE
     Route: 031
     Dates: start: 20140711, end: 20140711
  9. POTASSIUM [Concomitant]
     Active Substance: POTASSIUM
     Indication: MEDICAL DIET
     Dosage: 1 TAB, DAILY
     Route: 048
  10. SELENIUM [Concomitant]
     Active Substance: SELENIUM
     Indication: MEDICAL DIET
     Dosage: 1 TAB, DAILY
     Route: 048
  11. MAGNESIUM [Concomitant]
     Active Substance: MAGNESIUM
     Indication: MEDICAL DIET
     Dosage: 1 TAB, DAILY
     Route: 048
  12. ALPHA LIPOIC ACID [Concomitant]
     Active Substance: .ALPHA.-LIPOIC ACID
     Indication: MEDICAL DIET
     Dosage: 1 TAB, DAILY
     Route: 048

REACTIONS (3)
  - Eye contusion [Recovered/Resolved]
  - Photopsia [Recovered/Resolved]
  - Vitreous floaters [Recovered/Resolved]

NARRATIVE: CASE EVENT DATE: 20140711
